FAERS Safety Report 6504982-3 (Version None)
Quarter: 2009Q4

REPORT INFORMATION
  Report Type: 
  Country: None (occurrence: None)
  Receive Date: 20091218
  Receipt Date: 20091209
  Transmission Date: 20100525
  Serious: Yes (Other)
  Sender: FDA-Public Use
  Company Number: GB-NOVOPROD-301987

PATIENT
  Age: 39 Year
  Sex: Male
  Weight: 78 kg

DRUGS (5)
  1. NOVOSEVEN [Suspect]
     Indication: HAEMORRHAGE PROPHYLAXIS
     Dosage: 90 UG/KG BOLUS
     Route: 042
  2. NOVOSEVEN [Suspect]
     Dosage: 16.5 UG/KG/H CONTINUOUS INFUSION
     Route: 042
  3. NOVOSEVEN [Suspect]
     Dosage: THREE ADDITIONAL BOLUSES AT 3 HOUR INTERVALS DAYS 7 + 8
  4. NOVOSEVEN [Suspect]
     Dosage: 30 UG/KG/H INFUSION
     Route: 042
  5. NOVOSEVEN [Suspect]
     Dosage: 16 UG/KG/H INFUSION STARTING DAY 16

REACTIONS (1)
  - POST PROCEDURAL HAEMORRHAGE [None]
